FAERS Safety Report 14813119 (Version 1)
Quarter: 2018Q2

REPORT INFORMATION
  Report Type: Spontaneous
  Country: FR (occurrence: FR)
  Receive Date: 20180426
  Receipt Date: 20180426
  Transmission Date: 20180711
  Serious: Yes (Other)
  Sender: FDA-Public Use
  Company Number: FR-MERCK KGAA-2046553

PATIENT
  Age: 45 Year
  Sex: Female

DRUGS (1)
  1. NOVOTHYROX [Suspect]
     Active Substance: LEVOTHYROXINE SODIUM
     Indication: HYPOTHYROIDISM
     Dates: start: 201704

REACTIONS (23)
  - Disturbance in attention [None]
  - Middle insomnia [None]
  - Fatigue [None]
  - Anxiety [None]
  - Alopecia [Recovered/Resolved]
  - Muscle fatigue [Recovered/Resolved]
  - Impaired work ability [None]
  - Personal relationship issue [None]
  - Dyspnoea [Recovered/Resolved]
  - Aphasia [None]
  - Tension [None]
  - Hypothyroidism [Recovered/Resolved]
  - Migraine [Recovered/Resolved]
  - Loss of personal independence in daily activities [Recovered/Resolved]
  - Social avoidant behaviour [None]
  - Asthenia [Recovered/Resolved]
  - Hyperthyroidism [Recovered/Resolved]
  - Chest discomfort [Recovered/Resolved]
  - Gastrointestinal disorder [None]
  - Myalgia [Recovered/Resolved]
  - Psychiatric symptom [None]
  - Emotional distress [None]
  - Tearfulness [None]

NARRATIVE: CASE EVENT DATE: 2017
